FAERS Safety Report 8375545 (Version 2)
Quarter: 2013Q1

REPORT INFORMATION
  Report Type: Report from Study
  Country: US (occurrence: US)
  Receive Date: 20120129
  Receipt Date: 20130129
  Transmission Date: 20140127
  Serious: No
  Sender: FDA-Public Use
  Company Number: US-ABBOTT-11P-163-0887164-00

PATIENT
  Age: 37 Year
  Sex: Female

DRUGS (4)
  1. HUMIRA 40 MG/0.8 ML PEN [Suspect]
     Indication: CROHN^S DISEASE
     Dates: start: 20111221
  2. HUMIRA 40 MG/0.8 ML PEN [Suspect]
     Dates: start: 20111221
  3. APRISO [Concomitant]
     Indication: CROHN^S DISEASE
     Dosage: FOUR CAPSULES DAILY
  4. ACIPHEX [Concomitant]
     Indication: DYSPEPSIA
     Dosage: DAILY

REACTIONS (3)
  - Injection site pain [Recovered/Resolved]
  - Injection site pain [Recovered/Resolved]
  - Dysgeusia [Recovering/Resolving]
